FAERS Safety Report 6240268-2 (Version None)
Quarter: 2009Q2

REPORT INFORMATION
  Report Type: 
  Country: None (occurrence: None)
  Receive Date: 20090623
  Receipt Date: 20080522
  Transmission Date: 20091009
  Serious: No
  Sender: FDA-Public Use
  Company Number: US-ASTRAZENECA-2008UW10497

PATIENT
  Sex: Male

DRUGS (3)
  1. PULMICORT RESPULES [Suspect]
     Indication: EMPHYSEMA
     Dosage: 0.5 MG/DL TWICE DAILY (12 HOURS APART)
     Route: 055
     Dates: start: 20080301
  2. COMBIVENT [Concomitant]
  3. OXYGEN [Concomitant]

REACTIONS (1)
  - DYSPNOEA [None]
